FAERS Safety Report 17895171 (Version 1)
Quarter: 2020Q2

REPORT INFORMATION
  Report Type: Spontaneous
  Country: US (occurrence: US)
  Receive Date: 20200612
  Receipt Date: 20200612
  Transmission Date: 20200714
  Serious: Yes (Other)
  Sender: FDA-Public Use
  Company Number: None

PATIENT
  Sex: Female

DRUGS (4)
  1. HERPES SIMPLES SYMPTOM RELIEF KIT [Suspect]
     Active Substance: HOMEOPATHICS
     Dosage: ?          OTHER FREQUENCY:EVERY 3 DAYS;?
     Route: 060
     Dates: start: 20200211, end: 20200309
  2. MYCOPLASMA SYMPTOM RELIEF KIT [Concomitant]
     Dates: start: 20200211, end: 20200309
  3. MYCOCOMBO [Concomitant]
     Dates: start: 20200211, end: 20200309
  4. DETOXAMIN (CALCIUM DISODIUM EDTA) [Suspect]
     Active Substance: EDETATE CALCIUM DISODIUM\UNAPPROVED
     Route: 054
     Dates: start: 20200211, end: 20200309

REACTIONS (4)
  - Pyrexia [None]
  - Fatigue [None]
  - Genital herpes [None]
  - Malaise [None]

NARRATIVE: CASE EVENT DATE: 20200309
